FAERS Safety Report 20598187 (Version 3)
Quarter: 2023Q1

REPORT INFORMATION
  Report Type: Report from Study
  Country: US (occurrence: None)
  Receive Date: 20220315
  Receipt Date: 20230113
  Transmission Date: 20230417
  Serious: Yes (Hospitalization)
  Sender: FDA-Public Use
  Company Number: US-ROCHE-3049481

PATIENT
  Age: 65 Year
  Sex: Female
  Weight: 66.6 kg

DRUGS (2)
  1. ATEZOLIZUMAB [Suspect]
     Active Substance: ATEZOLIZUMAB
     Indication: Transitional cell carcinoma
     Dosage: OVER 60 MINUTES ON DAY 1, MOST RECENT DOSE RECEIVED ON 23/MAR/2022
     Route: 041
     Dates: start: 20220211
  2. ERIBULIN MESYLATE [Suspect]
     Active Substance: ERIBULIN MESYLATE
     Indication: Transitional cell carcinoma
     Dosage: OVER 2-3 MINUTES ON DAYS 1 AND 8, MOST RECENT DOSE RECEIVED ON 23/MAR/2022
     Route: 042
     Dates: start: 20220211

REACTIONS (3)
  - Embolism [Recovered/Resolved with Sequelae]
  - Pulmonary embolism [Unknown]
  - Peripheral swelling [Unknown]

NARRATIVE: CASE EVENT DATE: 20220218
